FAERS Safety Report 6380219-3 (Version None)
Quarter: 2009Q3

REPORT INFORMATION
  Report Type: 
  Country: None (occurrence: None)
  Receive Date: 20090921
  Receipt Date: 20090909
  Transmission Date: 20100115
  Serious: Yes (Hospitalization, Disabling)
  Sender: FDA-Public Use
  Company Number: 2009AP003656

PATIENT
  Age: 1 Year
  Sex: Male

DRUGS (1)
  1. CITALOPRAM HYDROBROMIDE [Suspect]
     Dosage: 20 MG; ; TRPL; QD
     Route: 064

REACTIONS (5)
  - CEREBRAL INFARCTION [None]
  - CEREBRAL PALSY [None]
  - CONVULSION NEONATAL [None]
  - HEMIPLEGIA [None]
  - TONIC CONVULSION [None]
